FAERS Safety Report 24238340 (Version 1)
Quarter: 2024Q3

REPORT INFORMATION
  Report Type: Other
  Country: US (occurrence: US)
  Receive Date: 20240822
  Receipt Date: 20240822
  Transmission Date: 20241016
  Serious: No
  Sender: SCIEGEN
  Company Number: US-SCIEGENP-2024SCSPO00355

PATIENT

DRUGS (1)
  1. BUPROPION HYDROCHLORIDE [Suspect]
     Active Substance: BUPROPION HYDROCHLORIDE
     Indication: Product used for unknown indication
     Dosage: 450MG
     Route: 065

REACTIONS (3)
  - Intentional product use issue [Unknown]
  - Product quality issue [Unknown]
  - Therapeutic product effect decreased [Unknown]
